FAERS Safety Report 4404605-3 (Version None)
Quarter: 2004Q3

REPORT INFORMATION
  Report Type: 
  Country: None (occurrence: None)
  Receive Date: 20040720
  Receipt Date: 20040705
  Transmission Date: 20050211
  Serious: Yes (Hospitalization, Other)
  Sender: FDA-Public Use
  Company Number: 237113

PATIENT
  Sex: Female
  Weight: 4.6 kg

DRUGS (21)
  1. ACTRAPID PENFILL HM (GE) 3 ML (ACTRAPID PENFILL HM (GE) 3 ML) [Suspect]
     Indication: DIABETES MELLITUS INSULIN-DEPENDENT
     Dosage: 33 IU, QD, INTRAUTERINE
     Route: 015
     Dates: start: 20030430
  2. PROTAPHAN HUMAN (INSULIN HUMAN INJECTION, ISOPHANE) [Concomitant]
  3. PENBRITIN (AMPICILLIN) [Concomitant]
  4. GARAMYCIN [Concomitant]
  5. CALCIUM GLUCONATE [Concomitant]
  6. SODIUM CHLORIDE 0.9% [Concomitant]
  7. HEPARIN [Concomitant]
  8. ENGERIX-B [Concomitant]
  9. PHYTONADIONE [Concomitant]
  10. TETRACYCLINE [Concomitant]
  11. FOLIC ACID [Concomitant]
  12. IRON (IRON) [Concomitant]
  13. MARCAINE [Concomitant]
  14. FENTANYL [Concomitant]
  15. EPHEDRINE SUL CAP [Concomitant]
  16. OXYTOCIN 10 USP UNITS IN DEXTROSE 5% [Concomitant]
  17. MONOCEF (CEFONICIDE) [Concomitant]
  18. PRAMIN (METOCLOPRAMIDE) [Concomitant]
  19. TAGAMET [Concomitant]
  20. SODIUM CHLORIDE 0.9% [Concomitant]
  21. GLUCOSE [Concomitant]

REACTIONS (3)
  - CAESAREAN SECTION [None]
  - DRUG EXPOSURE DURING PREGNANCY [None]
  - HYPOGLYCAEMIA NEONATAL [None]
